FAERS Safety Report 17467990 (Version 1)
Quarter: 2020Q1

REPORT INFORMATION
  Report Type: Spontaneous
  Country: FR (occurrence: FR)
  Receive Date: 20200227
  Receipt Date: 20200227
  Transmission Date: 20200409
  Serious: Yes (Other)
  Sender: FDA-Public Use
  Company Number: FR-MYLANLABS-2020M1022568

PATIENT
  Age: 67 Year
  Sex: Female

DRUGS (6)
  1. CEFOTAXIME [Suspect]
     Active Substance: CEFOTAXIME SODIUM
     Indication: ENDOCARDITIS BACTERIAL
  2. VANCOMYCIN [Suspect]
     Active Substance: VANCOMYCIN
     Indication: ESCHERICHIA INFECTION
     Dosage: UNK
     Route: 065
  3. GENTAMICIN. [Suspect]
     Active Substance: GENTAMICIN
     Indication: ESCHERICHIA INFECTION
     Dosage: UNK
     Route: 065
  4. VANCOMYCIN [Suspect]
     Active Substance: VANCOMYCIN
     Indication: ENDOCARDITIS BACTERIAL
  5. CEFOTAXIME [Suspect]
     Active Substance: CEFOTAXIME SODIUM
     Indication: ESCHERICHIA INFECTION
     Dosage: 750 MILLIGRAM, QD
     Route: 042
  6. GENTAMICIN. [Suspect]
     Active Substance: GENTAMICIN
     Indication: ENDOCARDITIS BACTERIAL

REACTIONS (1)
  - Treatment failure [Unknown]
